FAERS Safety Report 9454002 (Version 1)
Quarter: 2013Q3

REPORT INFORMATION
  Report Type: Spontaneous
  Country: FR (occurrence: FR)
  Receive Date: 20130812
  Receipt Date: 20130812
  Transmission Date: 20140515
  Serious: Yes (Other)
  Sender: FDA-Public Use
  Company Number: FR-BAYER-2013-094453

PATIENT
  Age: 63 Year
  Sex: Female

DRUGS (1)
  1. NIMOTOP [Suspect]
     Indication: PROPHYLAXIS
     Dosage: 50 MG, QD
     Route: 042
     Dates: start: 20130615, end: 20130701

REACTIONS (3)
  - Transaminases increased [Recovered/Resolved]
  - Blood alkaline phosphatase increased [Recovering/Resolving]
  - Gamma-glutamyltransferase increased [Recovering/Resolving]
